FAERS Safety Report 25375371 (Version 2)
Quarter: 2025Q2

REPORT INFORMATION
  Report Type: Spontaneous
  Country: CO (occurrence: CO)
  Receive Date: 20250529
  Receipt Date: 20250612
  Transmission Date: 20250716
  Serious: Yes (Hospitalization)
  Sender: VERTEX
  Company Number: CO-VERTEX PHARMACEUTICALS-2025-008517

PATIENT
  Age: 0 Year
  Sex: Male
  Weight: 11 kg

DRUGS (5)
  1. TRIKAFTA [Suspect]
     Active Substance: ELEXACAFTOR\IVACAFTOR\TEZACAFTOR
     Indication: Cystic fibrosis
     Dosage: 2 TABS IN THE AM; 1 TAB IN THE PM
     Route: 048
     Dates: start: 202012
  2. BECLOMETHASONE [Concomitant]
     Active Substance: BECLOMETHASONE
     Indication: Rhinitis allergic
     Dates: start: 20150101
  3. ASPIRIN [Concomitant]
     Active Substance: ASPIRIN
     Indication: High risk pregnancy
     Dosage: ONCE A DAY
     Route: 048
     Dates: start: 20231201
  4. DORNASE ALFA [Concomitant]
     Active Substance: DORNASE ALFA
     Indication: Cystic fibrosis
     Dosage: 1 VIAL ONCE DAILY
     Route: 055
     Dates: start: 20150101
  5. ALBUTEROL [Concomitant]
     Active Substance: ALBUTEROL
     Indication: Cystic fibrosis
     Dosage: 2 PUFFS ONCE A DAY
     Dates: start: 20150101

REACTIONS (1)
  - Transient tachypnoea of the newborn [Recovered/Resolved]

NARRATIVE: CASE EVENT DATE: 20240612
